FAERS Safety Report 6659944-2 (Version None)
Quarter: 2010Q1

REPORT INFORMATION
  Report Type: 
  Country: None (occurrence: None)
  Receive Date: 20100330
  Receipt Date: 20100324
  Transmission Date: 20100710
  Serious: Yes (Death, Hospitalization)
  Sender: FDA-Public Use
  Company Number: US-BRISTOL-MYERS SQUIBB COMPANY-15035744

PATIENT
  Age: 49 Year
  Sex: Female
  Weight: 88 kg

DRUGS (20)
  1. TAXOL [Suspect]
     Indication: NON-SMALL CELL LUNG CANCER STAGE IV
     Route: 042
     Dates: start: 20091014, end: 20091104
  2. TAXOL [Suspect]
     Indication: METASTASES TO CENTRAL NERVOUS SYSTEM
     Route: 042
     Dates: start: 20091014, end: 20091104
  3. CARBOPLATIN [Suspect]
     Indication: NON-SMALL CELL LUNG CANCER STAGE IV
     Dosage: 2 CYCLES
     Dates: start: 20091014, end: 20091104
  4. CARBOPLATIN [Suspect]
     Indication: METASTASES TO CENTRAL NERVOUS SYSTEM
     Dosage: 2 CYCLES
     Dates: start: 20091014, end: 20091104
  5. RADIOTHERAPY [Concomitant]
     Dosage: 1DF-37.5GY/15FRACTIONS.ROUTE-EXTERNAL BEAM NOS.DOSE-QD,5DAYS A WEEK,*3WEEKS.WHOLE BRAIN RADIOTHERAPY
     Dates: start: 20090911, end: 20090929
  6. DECADRON [Concomitant]
     Route: 048
  7. KEPPRA [Concomitant]
     Route: 048
  8. ZOCOR [Concomitant]
     Dosage: 20 MG AT BED TIME.
     Route: 048
  9. PEPCID [Concomitant]
     Route: 048
  10. COLACE [Concomitant]
     Indication: CONSTIPATION
  11. REGLAN [Concomitant]
     Indication: NAUSEA
  12. LUNESTA [Concomitant]
     Indication: INSOMNIA
  13. MYCELEX [Concomitant]
     Indication: ANTIFUNGAL TREATMENT
  14. OXYCODONE [Concomitant]
     Dosage: DOSE- Q4H PRN.
  15. CEFTRIAXONE [Concomitant]
  16. ATIVAN [Concomitant]
     Dosage: DOSE- Q4H.
  17. SENNA [Concomitant]
  18. AMBIEN [Concomitant]
  19. ZOFRAN [Concomitant]
  20. PRAVACHOL [Concomitant]

REACTIONS (1)
  - LEUKOENCEPHALOPATHY [None]
